FAERS Safety Report 10027456 (Version 1)
Quarter: 2014Q1

REPORT INFORMATION
  Report Type: Spontaneous
  Country: US (occurrence: US)
  Receive Date: 20140321
  Receipt Date: 20140321
  Transmission Date: 20141002
  Serious: No
  Sender: FDA-Public Use
  Company Number: US-PFIZER INC-2014081280

PATIENT
  Sex: Male

DRUGS (2)
  1. EFFEXOR [Suspect]
     Dosage: UNK
     Dates: end: 2014
  2. EFFEXOR XR [Suspect]
     Dosage: UNK
     Dates: end: 2014

REACTIONS (2)
  - Malaise [Unknown]
  - Withdrawal syndrome [Unknown]
